FAERS Safety Report 26097090 (Version 2)
Quarter: 2025Q4

REPORT INFORMATION
  Report Type: Report from Study
  Country: US (occurrence: US)
  Receive Date: 20251127
  Receipt Date: 20251204
  Transmission Date: 20260118
  Serious: Yes (Hospitalization, Other)
  Sender: ABBVIE
  Company Number: US-ABBVIE-6558606

PATIENT
  Age: 67 Year
  Sex: Female

DRUGS (3)
  1. CREON [Suspect]
     Active Substance: PANCRELIPASE AMYLASE\PANCRELIPASE LIPASE\PANCRELIPASE PROTEASE
     Indication: Product used for unknown indication
     Dosage: LAST ADMIN JUN 2021
     Route: 048
     Dates: start: 20210611
  2. CREON [Suspect]
     Active Substance: PANCRELIPASE AMYLASE\PANCRELIPASE LIPASE\PANCRELIPASE PROTEASE
     Indication: Product used for unknown indication
     Route: 048
     Dates: start: 20210615
  3. CREON [Suspect]
     Active Substance: PANCRELIPASE AMYLASE\PANCRELIPASE LIPASE\PANCRELIPASE PROTEASE
     Indication: Product used for unknown indication
     Route: 048
     Dates: start: 2023

REACTIONS (13)
  - Gastrointestinal microorganism overgrowth [Recovered/Resolved]
  - Pancreatitis [Not Recovered/Not Resolved]
  - Road traffic accident [Recovering/Resolving]
  - Head injury [Not Recovered/Not Resolved]
  - Tooth fracture [Recovering/Resolving]
  - Pancreatic failure [Not Recovered/Not Resolved]
  - Thyrotoxic crisis [Not Recovered/Not Resolved]
  - COVID-19 [Recovered/Resolved]
  - Osteoporosis [Unknown]
  - Osteoporosis [Recovered/Resolved]
  - Weight decreased [Not Recovered/Not Resolved]
  - Concussion [Unknown]
  - COVID-19 [Unknown]

NARRATIVE: CASE EVENT DATE: 20210101
